FAERS Safety Report 5113614-0 (Version None)
Quarter: 2006Q3

REPORT INFORMATION
  Report Type: 
  Country: None (occurrence: None)
  Receive Date: 20060925
  Receipt Date: 20060913
  Transmission Date: 20061208
  Serious: Yes (Hospitalization)
  Sender: FDA-Public Use
  Company Number: US-AMGEN-STX193423

PATIENT
  Sex: Female

DRUGS (2)
  1. ENBREL [Suspect]
     Indication: JUVENILE ARTHRITIS
     Route: 058
     Dates: start: 19990101
  2. HUMIRA [Concomitant]
     Dates: start: 20060101, end: 20060101

REACTIONS (4)
  - ARM AMPUTATION [None]
  - CONDITION AGGRAVATED [None]
  - MALAISE [None]
  - RHEUMATOID ARTHRITIS [None]
